FAERS Safety Report 4869248-6 (Version None)
Quarter: 2005Q4

REPORT INFORMATION
  Report Type: 
  Country: None (occurrence: None)
  Receive Date: 20051223
  Receipt Date: 20030616
  Transmission Date: 20060501
  Serious: Yes (Hospitalization)
  Sender: FDA-Public Use
  Company Number: HQ3445423JUL2002

PATIENT
  Age: 56 Year
  Sex: Female

DRUGS (7)
  1. GEMTUZUMAB OZOGAMICIN [Suspect]
     Indication: ACUTE MYELOID LEUKAEMIA
     Dosage: 6 MG/M^ 1X PER 1 DAY INTRAVENOUS
     Route: 042
     Dates: start: 20020614, end: 20020614
  2. TEMAZEPAM [Concomitant]
  3. ACETAMINOPHEN [Concomitant]
  4. VENTOLIN (SALBUTAMOL SULFATE) [Concomitant]
  5. ATROVENT [Concomitant]
  6. NYSTATIN [Concomitant]
  7. CEFEPIME (CEFEPIME) [Concomitant]

REACTIONS (6)
  - CANDIDA SEPSIS [None]
  - CATHETER SEPSIS [None]
  - LUNG CONSOLIDATION [None]
  - PANCYTOPENIA [None]
  - PLEURAL EFFUSION [None]
  - PULMONARY CONGESTION [None]
